FAERS Safety Report 11793142 (Version 2)
Quarter: 2016Q1

REPORT INFORMATION
  Report Type: Spontaneous
  Country: AU (occurrence: AU)
  Receive Date: 20151202
  Receipt Date: 20160304
  Transmission Date: 20160525
  Serious: Yes (Death)
  Sender: FDA-Public Use
  Company Number: AU-009507513-1511AUS015711

PATIENT
  Age: 86 Year
  Sex: Male

DRUGS (1)
  1. JANUVIA [Suspect]
     Active Substance: SITAGLIPTIN PHOSPHATE
     Indication: TYPE 2 DIABETES MELLITUS
     Dosage: 100 MG, UNK
     Route: 048

REACTIONS (3)
  - Syncope [Unknown]
  - Head injury [Fatal]
  - Glomerular filtration rate decreased [Unknown]
